FAERS Safety Report 9105438 (Version 1)
Quarter: 2013Q1

REPORT INFORMATION
  Report Type: Spontaneous
  Country: US (occurrence: US)
  Receive Date: 20130220
  Receipt Date: 20130220
  Transmission Date: 20140127
  Serious: No
  Sender: FDA-Public Use
  Company Number: US-BAYER-2013-017693

PATIENT
  Age: 54 Year
  Sex: Male

DRUGS (8)
  1. ULTRAVIST [Suspect]
     Indication: ARTERIOGRAM CORONARY
     Dosage: 105 ML, ONCE
     Route: 042
     Dates: start: 20130207, end: 20130207
  2. ULTRAVIST [Suspect]
     Indication: CHEST PAIN
  3. ULTRAVIST [Suspect]
     Indication: CATHETERISATION CARDIAC
  4. LISINOPRIL [Concomitant]
  5. HYDROCHLOROTHIAZIDE [Concomitant]
  6. PRILOSEC [Concomitant]
  7. NTG [Concomitant]
  8. BENADRYL [Concomitant]
     Indication: PREMEDICATION
     Dosage: 25 MG, UNK
     Route: 048
     Dates: start: 20130202

REACTIONS (1)
  - Urticaria [Recovered/Resolved]
